FAERS Safety Report 7727237-8 (Version None)
Quarter: 2011Q3

REPORT INFORMATION
  Report Type: 
  Country: None (occurrence: None)
  Receive Date: 20110902
  Receipt Date: 20110818
  Transmission Date: 20111222
  Serious: Yes (Hospitalization, Other)
  Sender: FDA-Public Use
  Company Number: US-BAYER-2011-076327

PATIENT
  Age: 81 Year
  Sex: Female
  Weight: 68.027 kg

DRUGS (4)
  1. PREMARIN [Concomitant]
  2. ALKA-SELTZER PLUS NON-DROWSY COLD [Suspect]
     Indication: SEASONAL ALLERGY
     Dosage: 2 DF, PRN
     Route: 048
     Dates: start: 20110528, end: 20110530
  3. ALEVE (CAPLET) [Suspect]
     Indication: ANALGESIC THERAPY
     Dosage: 220 MG, OW
     Route: 048
  4. ANTIGLAUCOMA PREPARATIONS AND MIOTICS [Concomitant]
     Indication: GLAUCOMA

REACTIONS (3)
  - HAEMATOCHEZIA [None]
  - HAEMORRHAGIC DIATHESIS [None]
  - GASTRIC ULCER HAEMORRHAGE [None]
